FAERS Safety Report 16855029 (Version 1)
Quarter: 2019Q3

REPORT INFORMATION
  Report Type: Spontaneous
  Country: ZA (occurrence: ZA)
  Receive Date: 20190926
  Receipt Date: 20190926
  Transmission Date: 20191005
  Serious: Yes (Death, Other)
  Sender: FDA-Public Use
  Company Number: ZA-GLAXOSMITHKLINE-ZA2019EME166068

PATIENT

DRUGS (7)
  1. LEXOTAN [Suspect]
     Active Substance: BROMAZEPAM
     Indication: STRESS
     Dosage: 3 MG, UNK
     Route: 048
     Dates: end: 201908
  2. ASPAVOR [Suspect]
     Active Substance: ATORVASTATIN
     Indication: BLOOD CHOLESTEROL
     Dosage: 10 MG, UNK
     Dates: end: 201908
  3. FOXAIR [Suspect]
     Active Substance: FLUTICASONE PROPIONATE\SALMETEROL XINAFOATE
     Indication: ASTHMA
     Dosage: (50/250 UG), UNK
     Dates: end: 201908
  4. ESPIRIDE [Suspect]
     Active Substance: SULPIRIDE
     Indication: STRESS
     Dosage: 50 MG, UNK
     Dates: end: 201908
  5. FORVENT [Suspect]
     Active Substance: TIOTROPIUM BROMIDE
     Indication: ASTHMA
     Dosage: 18 UG, UNK
     Route: 048
     Dates: end: 201908
  6. TREPILINE [Suspect]
     Active Substance: AMITRIPTYLINE
     Indication: STRESS
     Dosage: 10 MG, UNK
     Route: 048
     Dates: end: 201908
  7. CARDICOR [Suspect]
     Active Substance: BISOPROLOL
     Indication: CARDIAC DISORDER
     Dosage: 2.5 MG, UNK
     Route: 048
     Dates: end: 201908

REACTIONS (1)
  - Death [Fatal]
